FAERS Safety Report 5613143-1 (Version None)
Quarter: 2008Q1

REPORT INFORMATION
  Report Type: 
  Country: None (occurrence: None)
  Receive Date: 20080129
  Receipt Date: 20080117
  Transmission Date: 20080703
  Serious: Yes (Hospitalization)
  Sender: FDA-Public Use
  Company Number: 230741J08USA

PATIENT

DRUGS (3)
  1. REBIF [Suspect]
     Indication: MULTIPLE SCLEROSIS
     Dosage: 44 MCG, 3 IN 1 WEEKS, SUBCUTANEOUS
     Route: 058
     Dates: start: 20071024, end: 20080104
  2. ALTACE [Suspect]
     Indication: HYPERTENSION
     Dates: start: 20071201, end: 20080102
  3. NEURONTIN [Concomitant]

REACTIONS (4)
  - ANGIOEDEMA [None]
  - DRUG HYPERSENSITIVITY [None]
  - GUILLAIN-BARRE SYNDROME [None]
  - HYPERTENSION [None]
